FAERS Safety Report 9659905 (Version 1)
Quarter: 2013Q4

REPORT INFORMATION
  Report Type: Spontaneous
  Country: PL (occurrence: PL)
  Receive Date: 20131031
  Receipt Date: 20131031
  Transmission Date: 20140711
  Serious: Yes (Death, Hospitalization)
  Sender: FDA-Public Use
  Company Number: PL-SA-2013SA109111

PATIENT
  Age: 19 Year
  Sex: Male

DRUGS (4)
  1. RIFAMPICIN [Suspect]
     Indication: SUICIDE ATTEMPT
     Route: 048
  2. ISONIAZID [Suspect]
     Indication: SUICIDE ATTEMPT
     Route: 048
  3. PYRAZINAMIDE [Suspect]
     Indication: SUICIDE ATTEMPT
     Route: 048
  4. KETOPROFEN [Suspect]
     Indication: SUICIDE ATTEMPT
     Route: 048

REACTIONS (27)
  - Cardiomyopathy [Fatal]
  - Overdose [Unknown]
  - Electrocardiogram abnormal [Fatal]
  - Troponin I increased [Fatal]
  - Blood creatine phosphokinase increased [Fatal]
  - Systolic dysfunction [Fatal]
  - Ejection fraction decreased [Fatal]
  - Arrhythmia [Fatal]
  - Cardiogenic shock [Fatal]
  - Pulmonary oedema [Fatal]
  - Cardiac arrest [Fatal]
  - Blood pressure decreased [Fatal]
  - Red man syndrome [Unknown]
  - Skin discolouration [Unknown]
  - Pruritus [Unknown]
  - Hyperventilation [Unknown]
  - Respiratory alkalosis [Unknown]
  - Hypokalaemia [Unknown]
  - Dyspnoea [Unknown]
  - Hyperhidrosis [Unknown]
  - Tremor [Unknown]
  - Somnolence [Unknown]
  - Restlessness [Unknown]
  - Metabolic acidosis [Unknown]
  - Nausea [Unknown]
  - Vomiting [Unknown]
  - Nystagmus [Unknown]
